FAERS Safety Report 17282470 (Version 1)
Quarter: 2020Q1

REPORT INFORMATION
  Report Type: Report from Study
  Country: CA (occurrence: CA)
  Receive Date: 20200117
  Receipt Date: 20200117
  Transmission Date: 20200409
  Serious: Yes (Hospitalization, Other)
  Sender: FDA-Public Use
  Company Number: CA-GILEAD-2020-0445575

PATIENT
  Age: 48 Year
  Sex: Female

DRUGS (3)
  1. SOFOSBUVIR W/VELPATASVIR [Suspect]
     Active Substance: SOFOSBUVIR\VELPATASVIR
     Indication: CHRONIC HEPATITIS C
     Dosage: 1 DOSAGE FORM, QD
     Route: 065
     Dates: start: 20191120
  2. CITALOPRAM [Concomitant]
     Active Substance: CITALOPRAM HYDROBROMIDE
  3. BUPROPION. [Concomitant]
     Active Substance: BUPROPION

REACTIONS (2)
  - Suicide attempt [Unknown]
  - Headache [Recovering/Resolving]
